FAERS Safety Report 14785507 (Version 1)
Quarter: 2018Q2

REPORT INFORMATION
  Report Type: Report from Study
  Country: US (occurrence: US)
  Receive Date: 20180420
  Receipt Date: 20180420
  Transmission Date: 20180711
  Serious: Yes (Hospitalization, Other)
  Sender: FDA-Public Use
  Company Number: US-TAKEDA-2017MPI010611

PATIENT
  Sex: Male

DRUGS (4)
  1. DEXAMETHASONE. [Suspect]
     Active Substance: DEXAMETHASONE
     Indication: PLASMA CELL MYELOMA
     Dosage: UNK
     Route: 065
  2. REVLIMID [Suspect]
     Active Substance: LENALIDOMIDE
     Indication: PLASMA CELL MYELOMA
     Dosage: UNK
     Route: 065
  3. IXAZOMIB [Suspect]
     Active Substance: IXAZOMIB
     Indication: PLASMA CELL MYELOMA
     Dosage: 4 MG, UNK
     Route: 048
     Dates: start: 201701
  4. VELCADE [Suspect]
     Active Substance: BORTEZOMIB
     Indication: PLASMA CELL MYELOMA
     Dosage: UNK
     Route: 065

REACTIONS (16)
  - Amyloidosis [Unknown]
  - Plasma cell myeloma [Unknown]
  - Dyspnoea [Unknown]
  - Pneumonia [Unknown]
  - Protein total increased [Unknown]
  - Haemoglobin decreased [Unknown]
  - Back pain [Unknown]
  - Infection [Unknown]
  - White blood cell count decreased [Unknown]
  - Sleep apnoea syndrome [Unknown]
  - Blood immunoglobulin G decreased [Unknown]
  - Red blood cell count decreased [Unknown]
  - Malaise [Unknown]
  - Cough [Unknown]
  - Blood calcium increased [Unknown]
  - Neuropathy peripheral [Unknown]
